FAERS Safety Report 10376169 (Version 4)
Quarter: 2014Q4

REPORT INFORMATION
  Report Type: Report from Study
  Country: JP (occurrence: JP)
  Receive Date: 20140811
  Receipt Date: 20141120
  Transmission Date: 20150528
  Serious: Yes (Other)
  Sender: FDA-Public Use
  Company Number: JP-GLAXOSMITHKLINE-B1022203A

PATIENT
  Age: 72 Year
  Sex: Male
  Weight: 66 kg

DRUGS (20)
  1. ELTROMBOPAG [Suspect]
     Active Substance: ELTROMBOPAG
     Dosage: 12.5 MG, QOD
     Route: 048
     Dates: start: 20140305
  2. PREDONINE [Concomitant]
     Active Substance: PREDNISOLONE\PREDNISOLONE ACETATE\PREDNISOLONE SODIUM SUCCINATE
     Indication: IMMUNE THROMBOCYTOPENIC PURPURA
     Route: 048
     Dates: end: 20120821
  3. PREDONINE [Concomitant]
     Active Substance: PREDNISOLONE\PREDNISOLONE ACETATE\PREDNISOLONE SODIUM SUCCINATE
     Dosage: 2.5 MG, QD
     Route: 048
     Dates: start: 20130207, end: 20130303
  4. ELTROMBOPAG [Suspect]
     Active Substance: ELTROMBOPAG
     Indication: IMMUNE THROMBOCYTOPENIC PURPURA
     Dosage: 12.5 MG, QD
     Route: 048
     Dates: start: 20120816, end: 20140304
  5. ISCOTIN [Suspect]
     Active Substance: ISONIAZID
     Dosage: 200 MG, QD
     Route: 048
     Dates: start: 20120816, end: 20130721
  6. PREDONINE [Concomitant]
     Active Substance: PREDNISOLONE\PREDNISOLONE ACETATE\PREDNISOLONE SODIUM SUCCINATE
     Route: 048
     Dates: start: 20121107, end: 20121209
  7. PREDONINE [Concomitant]
     Active Substance: PREDNISOLONE\PREDNISOLONE ACETATE\PREDNISOLONE SODIUM SUCCINATE
     Route: 048
     Dates: start: 20121210
  8. MAGMITT [Concomitant]
     Active Substance: MAGNESIUM OXIDE
     Indication: CONSTIPATION PROPHYLAXIS
     Route: 048
     Dates: end: 20120826
  9. FOSAMAC 35MG [Concomitant]
     Indication: OSTEOPOROSIS PROPHYLAXIS
     Dosage: 35 MG, WE
     Route: 048
     Dates: end: 20130721
  10. PREDONINE [Concomitant]
     Active Substance: PREDNISOLONE\PREDNISOLONE ACETATE\PREDNISOLONE SODIUM SUCCINATE
     Route: 048
     Dates: start: 20120822, end: 20120826
  11. PREDONINE [Concomitant]
     Active Substance: PREDNISOLONE\PREDNISOLONE ACETATE\PREDNISOLONE SODIUM SUCCINATE
     Route: 048
     Dates: start: 20120827, end: 20120904
  12. PREDONINE [Concomitant]
     Active Substance: PREDNISOLONE\PREDNISOLONE ACETATE\PREDNISOLONE SODIUM SUCCINATE
     Route: 048
     Dates: start: 20120905, end: 20120918
  13. GASTER [Concomitant]
     Active Substance: FAMOTIDINE
     Indication: PROPHYLAXIS
     Dosage: 20 MG, QD
     Route: 048
     Dates: start: 20130722, end: 20130818
  14. MICARDIS [Concomitant]
     Active Substance: TELMISARTAN
     Route: 048
  15. PREDONINE [Concomitant]
     Active Substance: PREDNISOLONE\PREDNISOLONE ACETATE\PREDNISOLONE SODIUM SUCCINATE
     Route: 048
     Dates: start: 20120919, end: 20121009
  16. DIFLUCAN [Suspect]
     Active Substance: FLUCONAZOLE
     Dosage: 200 MG, QD
     Route: 048
     Dates: end: 20130721
  17. OMEPRAL [Concomitant]
     Active Substance: OMEPRAZOLE
     Indication: PROPHYLAXIS
     Route: 048
     Dates: end: 20121106
  18. BAKTAR [Concomitant]
     Active Substance: SULFAMETHOXAZOLE\TRIMETHOPRIM
     Indication: PROPHYLAXIS
     Dosage: 1 DF, QD
     Route: 048
     Dates: end: 20130721
  19. PARIET [Concomitant]
     Active Substance: RABEPRAZOLE SODIUM
     Indication: PROPHYLAXIS
     Dosage: 10 MG, QD
     Route: 048
     Dates: start: 20121107, end: 20130721
  20. PREDONINE [Concomitant]
     Active Substance: PREDNISOLONE\PREDNISOLONE ACETATE\PREDNISOLONE SODIUM SUCCINATE
     Route: 048
     Dates: start: 20121010, end: 20121106

REACTIONS (3)
  - Lipid metabolism disorder [Recovered/Resolved]
  - Renal impairment [Recovered/Resolved]
  - Blood lactate dehydrogenase increased [Recovered/Resolved]

NARRATIVE: CASE EVENT DATE: 20120905
